FAERS Safety Report 4414248-3 (Version None)
Quarter: 2004Q3

REPORT INFORMATION
  Report Type: 
  Country: None (occurrence: None)
  Receive Date: 20040729
  Receipt Date: 20040722
  Transmission Date: 20050211
  Serious: Yes (Hospitalization, Other)
  Sender: FDA-Public Use
  Company Number: 200410728BVD

PATIENT
  Age: 80 Year
  Sex: Male
  Weight: 80 kg

DRUGS (10)
  1. ASPIRIN [Suspect]
     Indication: BACK PAIN
     Dosage: 300 MG, TOTAL DAILY, ORAL
     Route: 048
     Dates: start: 19990101, end: 20040501
  2. FALITHROM (PHENPROCOUMON) [Suspect]
     Indication: ARRHYTHMIA
     Dosage: 3 MG, TOTAL DAILY, ORAL
     Route: 048
     Dates: start: 20000101
  3. SPIRONOLACTONE [Suspect]
     Indication: ASCITES
     Dosage: 1 DF, TOTAL DAILY, ORAL
     Route: 048
     Dates: start: 20010101, end: 20040501
  4. SPIRONOLACTONE [Suspect]
     Indication: HEPATIC CIRRHOSIS
     Dosage: 1 DF, TOTAL DAILY, ORAL
     Route: 048
     Dates: start: 20010101, end: 20040501
  5. SPIRONOLACTONE [Suspect]
     Indication: OEDEMA
     Dosage: 1 DF, TOTAL DAILY, ORAL
     Route: 048
     Dates: start: 20010101, end: 20040501
  6. TARKA [Suspect]
     Indication: HYPERTENSION
     Dosage: 1 DF, TOTAL DAILY, ORAL
     Route: 048
     Dates: start: 20030201, end: 20040501
  7. AQUAPHOR [Concomitant]
  8. DIGITOXIN [Concomitant]
  9. UNAT [Concomitant]
  10. VIANI [Concomitant]

REACTIONS (6)
  - CIRCULATORY COLLAPSE [None]
  - DIALYSIS [None]
  - GASTRITIS EROSIVE [None]
  - GASTROINTESTINAL HAEMORRHAGE [None]
  - HYPERKALAEMIA [None]
  - PROTHROMBIN TIME PROLONGED [None]
